FAERS Safety Report 4804325-7 (Version None)
Quarter: 2005Q4

REPORT INFORMATION
  Report Type: 
  Country: None (occurrence: None)
  Receive Date: 20051018
  Receipt Date: 20051018
  Transmission Date: 20060501
  Serious: Yes (Hospitalization)
  Sender: FDA-Public Use
  Company Number: None

PATIENT
  Sex: Male
  Weight: 36.2878 kg

DRUGS (4)
  1. DILANTIN [Suspect]
     Indication: EPILEPSY
     Dosage: 100 MG BID [SEVERAL YEARS]
  2. PHENOBARBITAL TAB [Concomitant]
  3. KEPPRA [Concomitant]
  4. TOPIMAX [Concomitant]

REACTIONS (2)
  - DRUG TOXICITY [None]
  - STATUS EPILEPTICUS [None]
